FAERS Safety Report 9760273 (Version 2)
Quarter: 2015Q3

REPORT INFORMATION
  Report Type: Spontaneous
  Country: US (occurrence: US)
  Receive Date: 20131216
  Receipt Date: 20150806
  Transmission Date: 20151125
  Serious: No
  Sender: FDA-Public Use
  Company Number: US-GILEAD-2010-0028921

PATIENT
  Age: 75 Year
  Sex: Female
  Weight: 60.33 kg

DRUGS (19)
  1. FOSAMAX [Concomitant]
     Active Substance: ALENDRONATE SODIUM
  2. CELEBREX [Concomitant]
     Active Substance: CELECOXIB
  3. ZESTRIL [Concomitant]
     Active Substance: LISINOPRIL
  4. PANTOPRAZOLE SODIUM. [Concomitant]
     Active Substance: PANTOPRAZOLE SODIUM
  5. LUMIGAN [Concomitant]
     Active Substance: BIMATOPROST
  6. FERROUS SULFATE [Concomitant]
     Active Substance: FERROUS SULFATE\FERROUS SULFATE, DRIED
  7. MULTIVITAMIN [Concomitant]
     Active Substance: VITAMINS
  8. KLOR-CON [Concomitant]
     Active Substance: POTASSIUM CHLORIDE
  9. ADVANCED CALCIUM [Concomitant]
  10. ALDACTONE [Concomitant]
     Active Substance: SPIRONOLACTONE
  11. LOVASTATIN. [Concomitant]
     Active Substance: LOVASTATIN
  12. HYDROCHLOROTHIAZIDE. [Concomitant]
     Active Substance: HYDROCHLOROTHIAZIDE
  13. NAPROXEN. [Concomitant]
     Active Substance: NAPROXEN
  14. TENORMIN [Concomitant]
     Active Substance: ATENOLOL
  15. LETAIRIS [Suspect]
     Active Substance: AMBRISENTAN
     Indication: PULMONARY ARTERIAL HYPERTENSION
     Route: 048
     Dates: start: 20090408
  16. LASIX [Concomitant]
     Active Substance: FUROSEMIDE
  17. GLIPIZIDE. [Concomitant]
     Active Substance: GLIPIZIDE
  18. COUMADIN [Concomitant]
     Active Substance: WARFARIN SODIUM
  19. GLUCOPHAGE [Concomitant]
     Active Substance: METFORMIN HYDROCHLORIDE

REACTIONS (1)
  - Anaemia [Unknown]
